FAERS Safety Report 8583656-1 (Version None)
Quarter: 2012Q3

REPORT INFORMATION
  Report Type: 
  Country: None (occurrence: None)
  Receive Date: 20120809
  Receipt Date: 20120518
  Transmission Date: 20120928
  Serious: Yes (Disabling, Other)
  Sender: FDA-Public Use
  Company Number: US-009507513-1107USA03585

PATIENT

DRUGS (4)
  1. FOSAMAX PLUS D [Suspect]
     Indication: OSTEOPENIA
     Dosage: 70 MG, QW
     Route: 048
     Dates: start: 20080424, end: 20080927
  2. FOSAMAX [Suspect]
     Dosage: 70 MG, QW
     Route: 048
     Dates: start: 20090106, end: 20100527
  3. FOSAMAX [Suspect]
     Indication: OSTEOPENIA
     Dosage: 70 MG, UNK
     Route: 048
     Dates: start: 20060101, end: 20110208
  4. FOSAMAX [Suspect]
     Indication: OSTEOPOROSIS

REACTIONS (74)
  - ORAL DISORDER [None]
  - FALL [None]
  - VASCULAR CALCIFICATION [None]
  - HYPOTENSION [None]
  - CEREBRAL SMALL VESSEL ISCHAEMIC DISEASE [None]
  - VISION BLURRED [None]
  - NAUSEA [None]
  - BACK PAIN [None]
  - FATIGUE [None]
  - BREATH ODOUR [None]
  - VISUAL ACUITY REDUCED [None]
  - NASAL SEPTUM DEVIATION [None]
  - CHILLS [None]
  - SKIN MASS [None]
  - DENTAL CARIES [None]
  - ORAL INFECTION [None]
  - IMPAIRED HEALING [None]
  - GINGIVAL BLEEDING [None]
  - ABSCESS [None]
  - PERIODONTAL DISEASE [None]
  - CHEST PAIN [None]
  - ARTHRALGIA [None]
  - WEIGHT DECREASED [None]
  - JOINT SWELLING [None]
  - MUSCLE SPASMS [None]
  - PALPITATIONS [None]
  - DYSPNOEA [None]
  - CACHEXIA [None]
  - MENISCUS LESION [None]
  - OSTEOARTHRITIS [None]
  - OSTEONECROSIS [None]
  - LIGAMENT LAXITY [None]
  - SALIVARY HYPERSECRETION [None]
  - ABDOMINAL PAIN UPPER [None]
  - SINUSITIS [None]
  - MIGRAINE [None]
  - ORAL CAVITY FISTULA [None]
  - PERIODONTITIS [None]
  - ORAL MUCOSAL BLISTERING [None]
  - DIPLOPIA [None]
  - LIGAMENT SPRAIN [None]
  - GASTROOESOPHAGEAL REFLUX DISEASE [None]
  - DIARRHOEA [None]
  - ABSCESS ORAL [None]
  - TOOTH DISORDER [None]
  - DIZZINESS [None]
  - PARANASAL CYST [None]
  - ROTATOR CUFF SYNDROME [None]
  - PATELLOFEMORAL PAIN SYNDROME [None]
  - LOOSE TOOTH [None]
  - OSTEONECROSIS OF JAW [None]
  - NECK PAIN [None]
  - HEPATITIS A [None]
  - ARTHRITIS [None]
  - CEREBROVASCULAR ACCIDENT [None]
  - TINNITUS [None]
  - BALANCE DISORDER [None]
  - TEMPOROMANDIBULAR JOINT SYNDROME [None]
  - PAIN IN EXTREMITY [None]
  - ANXIETY DISORDER [None]
  - EYE PAIN [None]
  - DRUG INEFFECTIVE [None]
  - EYE PRURITUS [None]
  - CONJUNCTIVITIS INFECTIVE [None]
  - OSTEOMYELITIS [None]
  - GINGIVAL DISORDER [None]
  - BONE DISORDER [None]
  - INCREASED TENDENCY TO BRUISE [None]
  - PEPTIC ULCER [None]
  - APATHY [None]
  - PAIN [None]
  - RETINAL DISORDER [None]
  - BIPOLAR II DISORDER [None]
  - IRRITABLE BOWEL SYNDROME [None]
